FAERS Safety Report 7859997-X (Version None)
Quarter: 2011Q4

REPORT INFORMATION
  Report Type: 
  Country: None (occurrence: None)
  Receive Date: 20111025
  Receipt Date: 20111019
  Transmission Date: 20120403
  Serious: Yes (Other)
  Sender: FDA-Public Use
  Company Number: OSCN-PR-1110L-0196

PATIENT
  Age: 55 Year
  Sex: Male

DRUGS (1)
  1. OMNISCAN (GADODIAMIDE) [Suspect]
     Indication: PRODUCT USED FOR UNKNOWN INDICATION
     Dosage: 20 ML, SINGLE DOSE

REACTIONS (1)
  - NEPHROGENIC SYSTEMIC FIBROSIS [None]
